FAERS Safety Report 9685420 (Version 2)
Quarter: 2013Q4

REPORT INFORMATION
  Report Type: Spontaneous
  Country: US (occurrence: US)
  Receive Date: 20131113
  Receipt Date: 20131113
  Transmission Date: 20140711
  Serious: No
  Sender: FDA-Public Use
  Company Number: US-TEVA-370111USA

PATIENT
  Sex: Male

DRUGS (1)
  1. DESMOPRESSIN [Suspect]
     Route: 048
     Dates: start: 201210

REACTIONS (3)
  - Pollakiuria [Unknown]
  - Discomfort [Unknown]
  - Drug ineffective [Unknown]
